FAERS Safety Report 8403069-2 (Version None)
Quarter: 2012Q2

REPORT INFORMATION
  Report Type: 
  Country: None (occurrence: None)
  Receive Date: 20120601
  Receipt Date: 20120521
  Transmission Date: 20120825
  Serious: Yes (Hospitalization)
  Sender: FDA-Public Use
  Company Number: JP-ELI_LILLY_AND_COMPANY-JP201201009524

PATIENT
  Age: 80 Year
  Sex: Female

DRUGS (3)
  1. ONEALFA [Concomitant]
     Dosage: UNK
     Dates: start: 20111008
  2. DIURETICS [Concomitant]
     Route: 065
  3. FORTEO [Suspect]
     Indication: OSTEOPOROSIS
     Dosage: 20 UG, QD
     Route: 058
     Dates: start: 20110414, end: 20120128

REACTIONS (1)
  - RENAL FAILURE ACUTE [None]
